FAERS Safety Report 18538879 (Version 2)
Quarter: 2025Q1

REPORT INFORMATION
  Report Type: Spontaneous
  Country: US (occurrence: US)
  Receive Date: 20201124
  Receipt Date: 20250109
  Transmission Date: 20250408
  Serious: No
  Sender: SANOFI AVENTIS
  Company Number: US-SANOFI-00362366

PATIENT
  Age: 56 Year
  Sex: Female

DRUGS (2)
  1. LANTUS [Suspect]
     Active Substance: INSULIN GLARGINE
     Indication: Type 2 diabetes mellitus
     Dosage: 25/15 IU, BID (MORNING/NIGHT )
     Route: 065
     Dates: start: 201911
  2. LANTUS [Suspect]
     Active Substance: INSULIN GLARGINE
     Dosage: 36.000[IU] INTERNATION UNIT(S) QD
     Route: 065

REACTIONS (3)
  - Visual impairment [Unknown]
  - Inappropriate schedule of product administration [Unknown]
  - Product dispensing issue [Unknown]

NARRATIVE: CASE EVENT DATE: 20191101
